FAERS Safety Report 25780183 (Version 2)
Quarter: 2025Q4

REPORT INFORMATION
  Report Type: Spontaneous
  Country: US (occurrence: US)
  Receive Date: 20250909
  Receipt Date: 20251013
  Transmission Date: 20260118
  Serious: No
  Sender: BRISTOL-MYERS SQUIBB COMPANY
  Company Number: US-BRISTOL-MYERS SQUIBB COMPANY-2025-124207

PATIENT
  Age: 60 Year
  Sex: Female

DRUGS (1)
  1. REVLIMID [Suspect]
     Active Substance: LENALIDOMIDE
     Indication: Plasma cell myeloma in remission
     Dates: start: 202404

REACTIONS (7)
  - Pain [Unknown]
  - Dizziness [Unknown]
  - Headache [Unknown]
  - Muscle tightness [Unknown]
  - Muscular weakness [Unknown]
  - Osteoporosis [Unknown]
  - Dysphonia [Unknown]

NARRATIVE: CASE EVENT DATE: 20250701
